FAERS Safety Report 4975295-6 (Version None)
Quarter: 2006Q2

REPORT INFORMATION
  Report Type: 
  Country: None (occurrence: None)
  Receive Date: 20060418
  Receipt Date: 20051223
  Transmission Date: 20061013
  Serious: Yes (Hospitalization)
  Sender: FDA-Public Use
  Company Number: US-MERCK-0512USA03772

PATIENT
  Age: 59 Year
  Sex: Male
  Weight: 66 kg

DRUGS (1)
  1. VIOXX [Suspect]
     Indication: BACK PAIN
     Route: 048
     Dates: start: 20000613, end: 20021030

REACTIONS (22)
  - ABDOMINAL DISTENSION [None]
  - ACUTE MYOCARDIAL INFARCTION [None]
  - AORTIC VALVE SCLEROSIS [None]
  - ATRIAL FIBRILLATION [None]
  - BLOOD CHOLESTEROL INCREASED [None]
  - BLOOD PRESSURE DIASTOLIC DECREASED [None]
  - BLOOD PRESSURE SYSTOLIC INCREASED [None]
  - CARDIAC ARREST [None]
  - CEREBRAL DISORDER [None]
  - CEREBROVASCULAR ACCIDENT [None]
  - CHEST PAIN [None]
  - CORONARY ARTERY DISEASE [None]
  - CORONARY ARTERY STENOSIS [None]
  - DIARRHOEA [None]
  - DILATATION ATRIAL [None]
  - HIATUS HERNIA [None]
  - HYPERTENSION [None]
  - INCORRECT DOSE ADMINISTERED [None]
  - MEMORY IMPAIRMENT [None]
  - MYOCARDIAL ISCHAEMIA [None]
  - VENTRICULAR FIBRILLATION [None]
  - VENTRICULAR HYPERTROPHY [None]
